FAERS Safety Report 9846093 (Version 1)
Quarter: 2014Q1

REPORT INFORMATION
  Report Type: Spontaneous
  Country: US (occurrence: None)
  Receive Date: 20140122
  Receipt Date: 20140122
  Transmission Date: 20141002
  Serious: Yes (Other)
  Sender: FDA-Public Use
  Company Number: 2014SA001556

PATIENT
  Age: 19 Year
  Sex: Male

DRUGS (1)
  1. ICY HOT [Suspect]
     Dosage: UNKNOWN, UNKNOWN, UNKNOWN

REACTIONS (2)
  - Injury [None]
  - Orchidectomy [None]
